FAERS Safety Report 20950328 (Version 2)
Quarter: 2023Q1

REPORT INFORMATION
  Report Type: Spontaneous
  Country: US (occurrence: US)
  Receive Date: 20220613
  Receipt Date: 20230124
  Transmission Date: 20230417
  Serious: Yes (Hospitalization, Other)
  Sender: FDA-Public Use
  Company Number: US-BRISTOL-MYERS SQUIBB COMPANY-2022-051791

PATIENT
  Age: 62 Year
  Sex: Male
  Weight: 79.38 kg

DRUGS (2)
  1. POMALYST [Suspect]
     Active Substance: POMALIDOMIDE
     Indication: Plasma cell myeloma
     Dosage: FREQUENCY: 1 CAPSULE DAILY FOR 21 DAYS ON AND THEN 7 DAYS OFF
     Route: 048
     Dates: start: 20211010
  2. POMALYST [Suspect]
     Active Substance: POMALIDOMIDE
     Dosage: DAILY X 21 DAYS ON AND 7 DAYS OFF
     Route: 048
     Dates: start: 20220604

REACTIONS (4)
  - Pneumonia [Recovered/Resolved]
  - Immunodeficiency [Recovered/Resolved]
  - Asthma [Recovered/Resolved]
  - Nasal congestion [Recovered/Resolved]
